FAERS Safety Report 7368975-9 (Version None)
Quarter: 2011Q1

REPORT INFORMATION
  Report Type: 
  Country: None (occurrence: None)
  Receive Date: 20110314
  Receipt Date: 20110225
  Transmission Date: 20110831
  Serious: Yes (Other)
  Sender: FDA-Public Use
  Company Number: AUR-APL-2011-00742

PATIENT
  Age: 77 Year
  Sex: Female
  Weight: 71 kg

DRUGS (11)
  1. DICLOFENAC SODIUM [Concomitant]
  2. BENDROFLUMETHIAZIDE [Concomitant]
  3. BUDESONIDE [Concomitant]
  4. FENOFIBRATE [Concomitant]
  5. SALBUTAMOL [Concomitant]
  6. MICONAZOLE [Concomitant]
  7. GLICLAZIDE [Concomitant]
  8. CLOMIPRAMINE [Concomitant]
  9. METFORMIN [Suspect]
     Dates: start: 20110215
  10. ISPAGHULA HUSK [Concomitant]
  11. SALMETEROL [Concomitant]

REACTIONS (1)
  - LIVER FUNCTION TEST ABNORMAL [None]
